FAERS Safety Report 10566543 (Version 2)
Quarter: 2014Q4

REPORT INFORMATION
  Report Type: Spontaneous
  Country: CA (occurrence: CA)
  Receive Date: 20141105
  Receipt Date: 20141221
  Transmission Date: 20150529
  Serious: Yes (Other)
  Sender: FDA-Public Use
  Company Number: CA-MYLANLABS-2014M1009083

PATIENT

DRUGS (8)
  1. LEVOCARB [Concomitant]
     Active Substance: CARBIDOPA\LEVODOPA
     Dosage: 200/50 UNK, 6XD
  2. VENLAFAXINE XR [Concomitant]
     Active Substance: VENLAFAXINE HYDROCHLORIDE
     Dosage: 300 MG, AM
  3. CLONAZEPAM. [Concomitant]
     Active Substance: CLONAZEPAM
     Dosage: 0.5 MG, HS
  4. CLONAZEPAM. [Concomitant]
     Active Substance: CLONAZEPAM
     Dosage: 0.25MG A
  5. VENLAFAXINE XR [Concomitant]
     Active Substance: VENLAFAXINE HYDROCHLORIDE
     Dosage: 75 MG, AM
  6. SEROQUEL [Concomitant]
     Active Substance: QUETIAPINE FUMARATE
     Dosage: UNK
  7. MYLAN-BUPROPION XL [Suspect]
     Active Substance: BUPROPION
     Indication: DEPRESSION
     Dosage: 300 MG, QD
     Route: 048
     Dates: start: 20141008, end: 20141013
  8. LEVOCARB [Concomitant]
     Active Substance: CARBIDOPA\LEVODOPA
     Dosage: 300MG QD, 1 TABLET AT 7AM THEN 1/2 TABLET EVERY 3 HOURS FOR 4 MORE DOSES

REACTIONS (18)
  - Suicidal ideation [Recovered/Resolved]
  - Drug ineffective [Recovering/Resolving]
  - Parkinson^s disease [Not Recovered/Not Resolved]
  - Mental disorder [Recovered/Resolved]
  - Chest discomfort [Recovered/Resolved]
  - Stress [Recovered/Resolved]
  - Depression [Recovered/Resolved]
  - Constipation [Recovered/Resolved]
  - Tremor [Recovered/Resolved]
  - Claustrophobia [Recovered/Resolved]
  - Chills [Recovered/Resolved]
  - Hypopnoea [Recovered/Resolved]
  - Asthenia [Recovered/Resolved]
  - Crying [Not Recovered/Not Resolved]
  - Abdominal discomfort [Recovered/Resolved]
  - Pain of skin [Recovered/Resolved]
  - Fatigue [Not Recovered/Not Resolved]
  - Balance disorder [Recovered/Resolved]

NARRATIVE: CASE EVENT DATE: 20141010
